FAERS Safety Report 24617893 (Version 3)
Quarter: 2025Q3

REPORT INFORMATION
  Report Type: Report from Study
  Country: US (occurrence: US)
  Receive Date: 20241114
  Receipt Date: 20250809
  Transmission Date: 20251021
  Serious: No
  Sender: ALEXION PHARMACEUTICALS
  Company Number: US-AstraZeneca-CH-00732053A

PATIENT
  Sex: Female
  Weight: 56.699 kg

DRUGS (4)
  1. TEZEPELUMAB [Suspect]
     Active Substance: TEZEPELUMAB
     Indication: Asthma
     Dosage: 210 MILLIGRAM, Q4W
  2. BREZTRI [Suspect]
     Active Substance: BUDESONIDE\FORMOTEROL\GLYCOPYRROLATE
  3. SYMBICORT [Suspect]
     Active Substance: BUDESONIDE\FORMOTEROL FUMARATE DIHYDRATE
  4. ESOMEPRAZOLE MAGNESIUM [Suspect]
     Active Substance: ESOMEPRAZOLE MAGNESIUM
     Route: 065

REACTIONS (10)
  - Oral pain [Unknown]
  - Vision blurred [Unknown]
  - Rhinorrhoea [Unknown]
  - Asthma [Unknown]
  - Breath sounds abnormal [Unknown]
  - Wheezing [Unknown]
  - Breath sounds [Unknown]
  - Gastrooesophageal reflux disease [Unknown]
  - Rhinitis [Unknown]
  - Urticaria [Unknown]
